FAERS Safety Report 23685043 (Version 1)
Quarter: 2024Q1

REPORT INFORMATION
  Report Type: Spontaneous
  Country: TR (occurrence: TR)
  Receive Date: 20240328
  Receipt Date: 20240328
  Transmission Date: 20240410
  Serious: Yes (Other)
  Sender: FDA-Public Use
  Company Number: None

PATIENT
  Age: 1 Decade
  Sex: Female

DRUGS (14)
  1. ETHOSUXIMIDE [Suspect]
     Active Substance: ETHOSUXIMIDE
     Indication: Epilepsy
     Dosage: 25 MILLIGRAM/KILOGRAM, QD, 20 TO 22 MONTHS
     Route: 065
  2. PHENOBARBITAL [Suspect]
     Active Substance: PHENOBARBITAL
     Indication: Epilepsy
     Dosage: 5 MILLIGRAM/KILOGRAM, QD; 3 WEEKS TO 10 MONTHS
     Route: 065
  3. LEVETIRACETAM [Suspect]
     Active Substance: LEVETIRACETAM
     Indication: Epilepsy
     Dosage: 60 MILLIGRAM/KILOGRAM, QD, 6 TO 25 MONTHS
     Route: 065
  4. CLOBAZAM [Suspect]
     Active Substance: CLOBAZAM
     Indication: Epilepsy
     Dosage: 1 MILLIGRAM/KILOGRAM, QD, 6 MONTHS TO 15 MONTHS
     Route: 065
  5. LAMOTRIGINE [Suspect]
     Active Substance: LAMOTRIGINE
     Indication: Epilepsy
     Dosage: 5 MILLIGRAM/KILOGRAM, QD, 16 TO 19 MONTHS
     Route: 065
  6. SULTHIAME [Suspect]
     Active Substance: SULTHIAME
     Indication: Epilepsy
     Dosage: 20 MILLIGRAM/KILOGRAM, QD, 15 TO 16 MONTHS
     Route: 065
  7. VIGABATRIN [Suspect]
     Active Substance: VIGABATRIN
     Indication: Epilepsy
     Dosage: 100 MILLIGRAM/KILOGRAM, QD, 3 WEEKS TO 12 MONTHS
     Route: 065
  8. ACTH [Suspect]
     Active Substance: CORTICOTROPIN
     Indication: Product used for unknown indication
     Dosage: 0.0125 MG/KG/DAY, 6 WEEKS TO 6 MONTHS
     Route: 065
  9. CARBAMAZEPINE [Suspect]
     Active Substance: CARBAMAZEPINE
     Indication: Epilepsy
     Dosage: 30 MG/KG/DAY, 10 TO 11 MONTHS
     Route: 065
  10. CLONAZEPAM [Suspect]
     Active Substance: CLONAZEPAM
     Indication: Epilepsy
     Dosage: 0.5 MG/KG/DAY, 2 MONTHS TO 3 MONTHS
     Route: 065
  11. CARBAMAZEPINE [Concomitant]
     Active Substance: CARBAMAZEPINE
     Indication: Epilepsy
     Dosage: 30 MILLIGRAM/KILOGRAM, QD, 10 TO 11 MONTHS
     Route: 065
  12. CDB [Concomitant]
     Indication: Epilepsy
     Dosage: 1 MG/KG/DAY, 30 MONTHS TO STILL GOING
     Route: 065
  13. LACOSAMIDE [Concomitant]
     Active Substance: LACOSAMIDE
     Indication: Epilepsy
     Dosage: 12 MG/KG/DAY, 30 MONTHS TO STILL GOING
     Route: 065
  14. ZONISAMIDE [Concomitant]
     Active Substance: ZONISAMIDE
     Indication: Epilepsy
     Dosage: 10 MG/KG/DAY, 30 MONTHS TO STILL GOING
     Route: 065

REACTIONS (6)
  - Drug ineffective [Unknown]
  - Discomfort [Unknown]
  - Nausea [Unknown]
  - Vomiting [Unknown]
  - Insomnia [Unknown]
  - Off label use [Unknown]
